FAERS Safety Report 9224313 (Version 1)
Quarter: 2013Q2

REPORT INFORMATION
  Report Type: Spontaneous
  Country: US (occurrence: None)
  Receive Date: 20130409
  Receipt Date: 20130409
  Transmission Date: 20140414
  Serious: Yes (Other)
  Sender: FDA-Public Use
  Company Number: None

PATIENT
  Age: 53 Year
  Sex: Female
  Weight: 75.3 kg

DRUGS (1)
  1. CHARCO CAPS [Suspect]
     Dosage: MOUTH
     Dates: start: 20130312

REACTIONS (1)
  - Headache [None]
